FAERS Safety Report 9780626 (Version 1)
Quarter: 2013Q4

REPORT INFORMATION
  Report Type: Spontaneous
  Country: ES (occurrence: ES)
  Receive Date: 20131224
  Receipt Date: 20131224
  Transmission Date: 20140711
  Serious: Yes (Other)
  Sender: FDA-Public Use
  Company Number: ES-JNJFOC-20131208285

PATIENT
  Age: 46 Year
  Sex: Female
  Weight: 100 kg

DRUGS (3)
  1. REMICADE [Suspect]
     Indication: CROHN^S DISEASE
     Route: 042
     Dates: start: 201301, end: 201310
  2. REMICADE [Suspect]
     Indication: CROHN^S DISEASE
     Route: 042
     Dates: start: 2012
  3. METHOTREXATE [Concomitant]
     Indication: CROHN^S DISEASE
     Route: 058

REACTIONS (6)
  - Bronchospasm [Recovered/Resolved]
  - Oxygen saturation decreased [Recovered/Resolved]
  - Infusion related reaction [Recovered/Resolved]
  - Erythema [Unknown]
  - Flushing [Recovered/Resolved]
  - Swelling [Unknown]
